FAERS Safety Report 9797215 (Version 1)
Quarter: 2014Q1

REPORT INFORMATION
  Report Type: Spontaneous
  Country: FR (occurrence: FR)
  Receive Date: 20140106
  Receipt Date: 20140106
  Transmission Date: 20141002
  Serious: Yes (Hospitalization)
  Sender: FDA-Public Use
  Company Number: FR-ROCHE-1328960

PATIENT
  Age: 68 Year
  Sex: Male

DRUGS (13)
  1. ROCEPHINE [Suspect]
     Indication: DEVICE RELATED INFECTION
     Route: 041
     Dates: start: 20131113, end: 20131120
  2. RIFADINE [Suspect]
     Indication: PRODUCT USED FOR UNKNOWN INDICATION
     Dosage: 300 MG
     Route: 048
     Dates: start: 20131119, end: 20131126
  3. FUNGIZONE [Suspect]
     Indication: PRODUCT USED FOR UNKNOWN INDICATION
     Route: 048
     Dates: start: 20131118, end: 20131129
  4. PARACETAMOL [Suspect]
     Indication: PRODUCT USED FOR UNKNOWN INDICATION
     Route: 048
     Dates: end: 20131129
  5. TOPALGIC (FRANCE) [Suspect]
     Indication: PRODUCT USED FOR UNKNOWN INDICATION
     Dosage: LP 200 MG
     Route: 048
     Dates: start: 20131029, end: 20131129
  6. LOVENOX [Suspect]
     Indication: PRODUCT USED FOR UNKNOWN INDICATION
     Route: 058
     Dates: start: 20131114, end: 20131117
  7. VANCOCINE [Concomitant]
     Route: 041
     Dates: start: 20131114, end: 20131129
  8. LASILIX [Concomitant]
     Dosage: 40 MG, LONG TERM TREATMENT
     Route: 048
     Dates: end: 20131129
  9. ALDACTONE (FRANCE) [Concomitant]
     Dosage: 25 MG, LONG TERM TREATMENT
     Route: 048
     Dates: end: 20131125
  10. DIFFU K [Concomitant]
     Dosage: LONG TERM TREATMENT
     Route: 048
     Dates: end: 20131125
  11. IMOVANE [Concomitant]
     Dosage: LONG TERM TREATMENT
     Route: 048
     Dates: end: 20131124
  12. LEXOMIL [Concomitant]
     Dosage: LONG TERM TREATMENT
     Route: 048
     Dates: end: 20131129
  13. ACUPAN [Concomitant]
     Dosage: LONG TERM TREATMENT
     Route: 065
     Dates: end: 20131129

REACTIONS (1)
  - Hepatocellular injury [Recovered/Resolved]
